FAERS Safety Report 4325480-1 (Version None)
Quarter: 2004Q1

REPORT INFORMATION
  Report Type: 
  Country: None (occurrence: None)
  Receive Date: 20040326
  Receipt Date: 20040326
  Transmission Date: 20041129
  Serious: Yes (Hospitalization)
  Sender: FDA-Public Use
  Company Number: None

PATIENT
  Age: 66 Year
  Sex: Female
  Weight: 60.782 kg

DRUGS (2)
  1. LITHIUM CITRATE [Suspect]
     Indication: BIPOLAR DISORDER
     Dosage: 300 MG QAM ORAL
     Route: 048
     Dates: start: 20040113, end: 20040115
  2. LITHIUM CITRATE [Suspect]
     Indication: BIPOLAR DISORDER
     Dosage: 450 MG QHS ORAL
     Route: 048
     Dates: start: 20040113, end: 20040115

REACTIONS (2)
  - DRUG TOXICITY [None]
  - MEDICATION ERROR [None]
